FAERS Safety Report 19893522 (Version 1)
Quarter: 2021Q3

REPORT INFORMATION
  Report Type: Other
  Country: US (occurrence: US)
  Receive Date: 20210929
  Receipt Date: 20210929
  Transmission Date: 20211014
  Serious: Yes (Death, Other)
  Sender: FDA-Public Use
  Company Number: US-ROCHE-2920048

PATIENT
  Sex: Female

DRUGS (3)
  1. XELODA [Suspect]
     Active Substance: CAPECITABINE
     Indication: MACULAR OEDEMA
  2. XELODA [Suspect]
     Active Substance: CAPECITABINE
     Indication: BREAST CANCER METASTATIC
     Dosage: TAKE 2 TABLET(S) BY MOUTH TWICE A DAY 1 WEEK(S) ON, 1 WEEK(S) OFF
     Route: 048
  3. XELODA [Suspect]
     Active Substance: CAPECITABINE
     Indication: RETINAL VEIN OCCLUSION

REACTIONS (3)
  - Death [Fatal]
  - Back disorder [Unknown]
  - General physical health deterioration [Unknown]
